FAERS Safety Report 9031664 (Version 1)
Quarter: 2013Q1

REPORT INFORMATION
  Report Type: Spontaneous
  Country: FR (occurrence: FR)
  Receive Date: 20130124
  Receipt Date: 20130124
  Transmission Date: 20140127
  Serious: No
  Sender: FDA-Public Use
  Company Number: PHHY2013FR006156

PATIENT
  Age: 13 Year
  Sex: Female
  Weight: 50 kg

DRUGS (1)
  1. LAMISIL [Suspect]
     Indication: BODY TINEA
     Dosage: 250 MG, QD FOR 2 DAYS
     Route: 048
     Dates: start: 20130115, end: 20130117

REACTIONS (1)
  - Drug prescribing error [Unknown]
